FAERS Safety Report 22683060 (Version 5)
Quarter: 2024Q2

REPORT INFORMATION
  Report Type: Spontaneous
  Country: US (occurrence: US)
  Receive Date: 20230707
  Receipt Date: 20240404
  Transmission Date: 20240715
  Serious: Yes (Other)
  Sender: FDA-Public Use
  Company Number: US-PFIZER INC-PV202300118498

PATIENT
  Age: 51 Year
  Sex: Female

DRUGS (2)
  1. XELJANZ XR [Suspect]
     Active Substance: TOFACITINIB CITRATE
     Dosage: UNK
  2. MYCOPHENOLIC ACID [Concomitant]
     Active Substance: MYCOPHENOLIC ACID
     Dosage: UNK
     Dates: end: 202312

REACTIONS (11)
  - Systemic lupus erythematosus [Unknown]
  - Infection [Unknown]
  - Increased appetite [Unknown]
  - Weight increased [Unknown]
  - Malaise [Unknown]
  - Pain [Unknown]
  - Arthralgia [Unknown]
  - Chills [Unknown]
  - Therapeutic product effect incomplete [Unknown]
  - Product dose omission in error [Unknown]
  - Skin ulcer [Recovered/Resolved]
